FAERS Safety Report 10205201 (Version 1)
Quarter: 2014Q2

REPORT INFORMATION
  Report Type: Spontaneous
  Country: JP (occurrence: JP)
  Receive Date: 20140529
  Receipt Date: 20140529
  Transmission Date: 20141212
  Serious: Yes (Other)
  Sender: FDA-Public Use
  Company Number: JP-PFIZER INC-2014145192

PATIENT
  Age: 43 Year
  Sex: Male

DRUGS (2)
  1. LONITEN [Suspect]
     Dosage: UNK
     Route: 048
     Dates: start: 2013
  2. PROPECIA [Suspect]

REACTIONS (1)
  - Liver function test abnormal [Unknown]
